FAERS Safety Report 4449621-0 (Version None)
Quarter: 2004Q3

REPORT INFORMATION
  Report Type: 
  Country: None (occurrence: None)
  Receive Date: 20040913
  Receipt Date: 20040827
  Transmission Date: 20050211
  Serious: No
  Sender: FDA-Public Use
  Company Number: 04P-163-0271730-00

PATIENT
  Sex: Male

DRUGS (1)
  1. ABBOKINASE [Suspect]
     Indication: DEEP VEIN THROMBOSIS
     Dosage: 60,000 UNITS PER HOUR, INTRAVENOUS
     Route: 042
     Dates: start: 20040826, end: 20040827

REACTIONS (3)
  - BLISTER [None]
  - EPIDERMOLYSIS [None]
  - INJURY [None]
